FAERS Safety Report 10469122 (Version 1)
Quarter: 2014Q3

REPORT INFORMATION
  Report Type: Spontaneous
  Country: RU (occurrence: RU)
  Receive Date: 20140923
  Receipt Date: 20140923
  Transmission Date: 20150326
  Serious: Yes (Other)
  Sender: FDA-Public Use
  Company Number: RU-ROCHE-1464218

PATIENT
  Sex: Female

DRUGS (1)
  1. XENICAL [Suspect]
     Active Substance: ORLISTAT
     Indication: PRODUCT USED FOR UNKNOWN INDICATION
     Dosage: 1-2 DAILY
     Route: 065

REACTIONS (7)
  - Onychoclasis [Unknown]
  - Gingival bleeding [Unknown]
  - Intestinal haemorrhage [Unknown]
  - Alopecia [Unknown]
  - Diarrhoea [Unknown]
  - Hypovitaminosis [Unknown]
  - Rash [Unknown]
